FAERS Safety Report 13346232 (Version 1)
Quarter: 2017Q1

REPORT INFORMATION
  Report Type: Spontaneous
  Country: GB (occurrence: GB)
  Receive Date: 20170317
  Receipt Date: 20170317
  Transmission Date: 20170428
  Serious: Yes (Other)
  Sender: FDA-Public Use
  Company Number: GB-GLAXOSMITHKLINE-GB2017GSK036428

PATIENT

DRUGS (1)
  1. ROPINIROLE. [Suspect]
     Active Substance: ROPINIROLE
     Indication: PRODUCT USED FOR UNKNOWN INDICATION

REACTIONS (15)
  - Obsessive-compulsive disorder [Unknown]
  - Transvestism [Unknown]
  - Tourette^s disorder [Unknown]
  - Excessive sexual fantasies [Unknown]
  - Hypersexuality [Unknown]
  - Eating disorder [Unknown]
  - Compulsive hoarding [Unknown]
  - Libido increased [Unknown]
  - Suicidal ideation [Unknown]
  - Gambling disorder [Unknown]
  - Voyeurism [Unknown]
  - Hallucination [Unknown]
  - Compulsive shopping [Unknown]
  - Sexual abuse [Unknown]
  - Nightmare [Unknown]
